FAERS Safety Report 7998160-9 (Version None)
Quarter: 2011Q4

REPORT INFORMATION
  Report Type: 
  Country: None (occurrence: None)
  Receive Date: 20111221
  Receipt Date: 20110316
  Transmission Date: 20120403
  Serious: No
  Sender: FDA-Public Use
  Company Number: US-GLAXOSMITHKLINE-A0918518A

PATIENT
  Age: 74 Year
  Sex: Female

DRUGS (5)
  1. HYDROCHLOROTHIAZIDE [Concomitant]
  2. LOVAZA [Suspect]
     Indication: BLOOD TRIGLYCERIDES INCREASED
     Dosage: 2CAP PER DAY
     Route: 048
     Dates: start: 20101201, end: 20110314
  3. TENORMIN [Concomitant]
  4. COZAAR [Concomitant]
  5. NEXIUM [Concomitant]

REACTIONS (3)
  - BACK PAIN [None]
  - ARTHRALGIA [None]
  - PAIN IN EXTREMITY [None]
